FAERS Safety Report 15572963 (Version 1)
Quarter: 2018Q4

REPORT INFORMATION
  Report Type: Spontaneous
  Country: US (occurrence: US)
  Receive Date: 20181031
  Receipt Date: 20181031
  Transmission Date: 20190205
  Serious: Yes (Other)
  Sender: FDA-Public Use
  Company Number: US-TEVA-2018-US-970195

PATIENT
  Sex: Male

DRUGS (2)
  1. COPAXONE [Suspect]
     Active Substance: GLATIRAMER ACETATE
     Indication: PRIMARY PROGRESSIVE MULTIPLE SCLEROSIS
     Route: 065
  2. TECFIDERA [Suspect]
     Active Substance: DIMETHYL FUMARATE
     Route: 065

REACTIONS (7)
  - Mental disorder [Not Recovered/Not Resolved]
  - Sleep disorder [Recovering/Resolving]
  - Anger [Unknown]
  - Malaise [Not Recovered/Not Resolved]
  - Tachyphrenia [Unknown]
  - Fall [Unknown]
  - Seizure [Unknown]
